FAERS Safety Report 9067828 (Version 2)
Quarter: 2013Q1

REPORT INFORMATION
  Report Type: Spontaneous
  Country: US (occurrence: US)
  Receive Date: 20130128
  Receipt Date: 20130308
  Transmission Date: 20140127
  Serious: No
  Sender: FDA-Public Use
  Company Number: US-B.I. PHARMACEUTICALS,INC./RIDGEFIELD-2013-BI-01845BP

PATIENT
  Age: 70 Year
  Sex: Male
  Weight: 120 kg

DRUGS (17)
  1. SPIRIVA [Suspect]
     Indication: LUNG NEOPLASM MALIGNANT
     Dosage: 18 MCG
     Route: 055
     Dates: start: 2004
  2. METFORMIN [Concomitant]
     Indication: DIABETES MELLITUS
     Dosage: 1000 MG
     Route: 048
  3. PROZAC [Concomitant]
     Indication: DEPRESSION
     Dosage: 20 MG
     Route: 048
  4. AMLODIPINE [Concomitant]
     Indication: HYPERTENSION
     Dosage: 5 MG
     Route: 048
  5. PREDNISONE [Concomitant]
     Dosage: 5 MG
     Route: 048
  6. COUMADIN [Concomitant]
     Indication: ATRIAL FIBRILLATION
     Dosage: 5 MG
     Route: 048
  7. LASIX [Concomitant]
     Indication: FLUID RETENTION
     Dosage: 20 MG
     Route: 048
  8. SIMVASTATIN [Concomitant]
     Indication: BLOOD CHOLESTEROL INCREASED
     Dosage: 10 MG
     Route: 048
  9. PROVENTIL [Concomitant]
     Indication: LUNG NEOPLASM MALIGNANT
     Route: 055
  10. SOTALOL [Concomitant]
     Indication: HYPERTENSION
     Dosage: 240 MG
     Route: 048
  11. ATROVENT NEBULIZER [Concomitant]
     Indication: LUNG NEOPLASM MALIGNANT
     Route: 055
  12. TESSALON PERLES [Concomitant]
     Indication: COUGH
     Dosage: 300 MG
     Route: 048
  13. GABAPENTIN [Concomitant]
     Indication: NEUROPATHY PERIPHERAL
     Dosage: 1800 MG
     Route: 048
  14. AMBIEN [Concomitant]
     Indication: INSOMNIA
     Dosage: 10 MG
     Route: 048
  15. POTASSIUM [Concomitant]
     Dosage: 10 MEQ
     Route: 048
  16. ALBUTEROL NEBULIZER [Concomitant]
     Indication: LUNG NEOPLASM MALIGNANT
     Route: 055
  17. XANAX [Concomitant]
     Indication: ANXIETY
     Dosage: 1 MG
     Route: 048

REACTIONS (3)
  - Inappropriate schedule of drug administration [Recovered/Resolved]
  - Product quality issue [Recovered/Resolved]
  - Product quality issue [Recovered/Resolved]
